FAERS Safety Report 24109357 (Version 1)
Quarter: 2024Q3

REPORT INFORMATION
  Report Type: Report from Study
  Country: DE (occurrence: DE)
  Receive Date: 20240718
  Receipt Date: 20240718
  Transmission Date: 20241016
  Serious: Yes (Hospitalization, Other)
  Sender: ABBVIE
  Company Number: DE-ABBVIE-5839926

PATIENT
  Age: 73 Year
  Sex: Female

DRUGS (1)
  1. RINVOQ [Suspect]
     Active Substance: UPADACITINIB
     Indication: Rheumatoid arthritis
     Route: 048

REACTIONS (8)
  - Femur fracture [Unknown]
  - Cutibacterium acnes infection [Unknown]
  - Blood loss anaemia [Unknown]
  - Fall [Unknown]
  - Staphylococcal infection [Unknown]
  - Hip arthroplasty [Unknown]
  - Joint dislocation [Unknown]
  - Implant site infection [Unknown]

NARRATIVE: CASE EVENT DATE: 20231101
